FAERS Safety Report 18297411 (Version 1)
Quarter: 2020Q3

REPORT INFORMATION
  Report Type: Spontaneous
  Country: EG (occurrence: EG)
  Receive Date: 20200923
  Receipt Date: 20200923
  Transmission Date: 20201103
  Serious: Yes (Other)
  Sender: FDA-Public Use
  Company Number: EG-LUPIN PHARMACEUTICALS INC.-2020-06257

PATIENT
  Age: 9 Month
  Sex: Male

DRUGS (1)
  1. VANCOMYCIN [Suspect]
     Active Substance: VANCOMYCIN
     Indication: ANTIBIOTIC PROPHYLAXIS
     Dosage: 20 MCG/ML (IRRIGATING SOLUTION)
     Route: 031

REACTIONS (3)
  - Retinal haemorrhage [Recovering/Resolving]
  - Retinal vasculitis [Recovering/Resolving]
  - Retinal vein occlusion [Recovering/Resolving]
